FAERS Safety Report 24085192 (Version 2)
Quarter: 2024Q3

REPORT INFORMATION
  Report Type: Spontaneous
  Country: IT (occurrence: IT)
  Receive Date: 20240712
  Receipt Date: 20240720
  Transmission Date: 20241017
  Serious: Yes (Death, Other)
  Sender: ALCON
  Company Number: IT-MONICO-240160

PATIENT

DRUGS (1)
  1. FLUORESCEIN SODIUM [Suspect]
     Active Substance: FLUORESCEIN SODIUM
     Indication: Fluorescence angiogram
     Dosage: 20% SOLUTION (5 ML)
     Route: 042

REACTIONS (1)
  - Kounis syndrome [Fatal]
